FAERS Safety Report 5681767-1 (Version None)
Quarter: 2008Q1

REPORT INFORMATION
  Report Type: 
  Country: None (occurrence: None)
  Receive Date: 20080326
  Receipt Date: 20070312
  Transmission Date: 20080703
  Serious: No
  Sender: FDA-Public Use
  Company Number: US-BAYER-US-2007-008946

PATIENT
  Age: 45 Year
  Sex: Female

DRUGS (6)
  1. MIRENA [Suspect]
     Indication: ANAEMIA
     Route: 015
     Dates: start: 20070302
  2. FERROUS SULFATE TAB [Concomitant]
     Indication: ANAEMIA
     Dates: end: 20070306
  3. ZOLOFT [Concomitant]
  4. ALBUTEROL [Concomitant]
  5. ALLEGRA [Concomitant]
  6. MOMETASONE FUROATE [Concomitant]

REACTIONS (1)
  - URTICARIA [None]
